FAERS Safety Report 23907174 (Version 1)
Quarter: 2024Q2

REPORT INFORMATION
  Report Type: Spontaneous
  Country: US (occurrence: US)
  Receive Date: 20240528
  Receipt Date: 20240528
  Transmission Date: 20240716
  Serious: No
  Sender: FDA-Public Use
  Company Number: US-TAKEDA-2024TUS052658

PATIENT
  Age: 19 Year
  Sex: Male
  Weight: 122 kg

DRUGS (1)
  1. ENTYVIO [Suspect]
     Active Substance: VEDOLIZUMAB
     Indication: Colitis ulcerative
     Dosage: 300 MILLIGRAM, Q6WEEKS
     Route: 042
     Dates: start: 20200411

REACTIONS (4)
  - No adverse event [Unknown]
  - Product dose omission issue [Unknown]
  - Product storage error [Unknown]
  - Off label use [Unknown]

NARRATIVE: CASE EVENT DATE: 20200411
